FAERS Safety Report 15810597 (Version 1)
Quarter: 2019Q1

REPORT INFORMATION
  Report Type: Spontaneous
  Country: US (occurrence: US)
  Receive Date: 20190111
  Receipt Date: 20190111
  Transmission Date: 20190417
  Serious: No
  Sender: FDA-Public Use
  Company Number: US-ROCHE-2178549

PATIENT
  Sex: Female

DRUGS (7)
  1. HUMIRA [Concomitant]
     Active Substance: ADALIMUMAB
  2. ENBREL [Concomitant]
     Active Substance: ETANERCEPT
  3. RITUXAN [Suspect]
     Active Substance: RITUXIMAB
     Indication: RHEUMATOID ARTHRITIS
     Route: 065
  4. METHOTREXATE. [Concomitant]
     Active Substance: METHOTREXATE
     Route: 065
     Dates: start: 2012
  5. PARACETAMOL [Concomitant]
     Active Substance: ACETAMINOPHEN
  6. CYMBALTA [Concomitant]
     Active Substance: DULOXETINE HYDROCHLORIDE
  7. ULTRAN [Concomitant]
     Active Substance: PHENAGLYCODOL

REACTIONS (1)
  - Hypersensitivity [Unknown]
